FAERS Safety Report 18288785 (Version 1)
Quarter: 2020Q3

REPORT INFORMATION
  Report Type: Spontaneous
  Country: US (occurrence: US)
  Receive Date: 20200920
  Receipt Date: 20200920
  Transmission Date: 20201103
  Serious: No
  Sender: FDA-Public Use
  Company Number: None

PATIENT
  Sex: Female
  Weight: 76.5 kg

DRUGS (15)
  1. TRAMADOL. [Concomitant]
     Active Substance: TRAMADOL
  2. MODAFINIL. [Concomitant]
     Active Substance: MODAFINIL
  3. MAGNESIUM [Concomitant]
     Active Substance: MAGNESIUM
  4. DESVENLAFAXINE ER SUCCINATE [Suspect]
     Active Substance: DESVENLAFAXINE SUCCINATE
     Indication: DEPRESSION
     Dosage: ?          QUANTITY:3 TABLET(S);?
     Route: 048
  5. CPAP THERAPY W/NASAL PILLOW MASK [Concomitant]
  6. ZALEPLON. [Concomitant]
     Active Substance: ZALEPLON
  7. VITAMIN B2 [Concomitant]
     Active Substance: RIBOFLAVIN
  8. MIRAPEX [Concomitant]
     Active Substance: PRAMIPEXOLE DIHYDROCHLORIDE
  9. PREGABALIN. [Concomitant]
     Active Substance: PREGABALIN
  10. PRAMIPEXOLE. [Concomitant]
     Active Substance: PRAMIPEXOLE
  11. LAMICTAL [Concomitant]
     Active Substance: LAMOTRIGINE
  12. VITAMIN D3 [Concomitant]
     Active Substance: CHOLECALCIFEROL
  13. ACYCLOVIR. [Concomitant]
     Active Substance: ACYCLOVIR
  14. LAMOTRIGINE. [Concomitant]
     Active Substance: LAMOTRIGINE
  15. LEVOTHYROXINE SODIUM. [Concomitant]
     Active Substance: LEVOTHYROXINE SODIUM

REACTIONS (5)
  - Hallucination [None]
  - Sleep attacks [None]
  - Feeling hot [None]
  - Abnormal sleep-related event [None]
  - Chills [None]
